FAERS Safety Report 7101690-5 (Version None)
Quarter: 2010Q4

REPORT INFORMATION
  Report Type: 
  Country: None (occurrence: None)
  Receive Date: 20101109
  Receipt Date: 20101025
  Transmission Date: 20110411
  Serious: Yes (Death, Hospitalization)
  Sender: FDA-Public Use
  Company Number: AE 2010-346

PATIENT
  Age: 67 Year
  Sex: Female

DRUGS (3)
  1. FAZACLO ODT [Suspect]
     Dosage: 25 MG DAILY PO
     Route: 048
     Dates: start: 20100712, end: 20100823
  2. MORPHINE [Concomitant]
  3. ATIVAN [Concomitant]

REACTIONS (1)
  - DEMENTIA [None]
